FAERS Safety Report 23907798 (Version 1)
Quarter: 2024Q2

REPORT INFORMATION
  Report Type: Spontaneous
  Country: HR (occurrence: HR)
  Receive Date: 20240528
  Receipt Date: 20240528
  Transmission Date: 20240715
  Serious: Yes (Death)
  Sender: FDA-Public Use
  Company Number: HR-AMGEN-HRVSP2024102714

PATIENT

DRUGS (1)
  1. KYPROLIS [Suspect]
     Active Substance: CARFILZOMIB
     Indication: Product used for unknown indication
     Dosage: UNK
     Route: 065

REACTIONS (2)
  - Disease progression [Fatal]
  - Sepsis [Fatal]
